FAERS Safety Report 24384455 (Version 1)
Quarter: 2024Q4

REPORT INFORMATION
  Report Type: Spontaneous
  Country: SK (occurrence: SK)
  Receive Date: 20241001
  Receipt Date: 20241001
  Transmission Date: 20250114
  Serious: Yes (Life-Threatening, Hospitalization, Other)
  Sender: FRESENIUS KABI
  Company Number: None

PATIENT
  Age: 58 Year
  Sex: Male
  Weight: 95 kg

DRUGS (4)
  1. CARBOPLATIN [Suspect]
     Active Substance: CARBOPLATIN
     Indication: Neoplasm malignant
     Dosage: FORM OF ADMINISTRATION-CONCENTRATE FOR SOLUTION FOR INFUSION?DURATION OF ADMINISTRATION: 60 MINS
     Dates: start: 20240808, end: 20240808
  2. PEMETREXED [Suspect]
     Active Substance: PEMETREXED
     Indication: Neoplasm malignant
     Dosage: FORM OF ADMINISTRATION-POWDER FOR CONCENTRATE FOR SOLUTION FOR INFUSION?DURATION OF ADMINISTRATION:
     Dates: start: 20240808, end: 20240808
  3. PEMETREXED [Suspect]
     Active Substance: PEMETREXED
     Dosage: FORM OF ADMISTRATION-POWDER FOR CONCENTRATE FOR SOLUTION FOR INFUSION?DURATION OF ADMINISTRATION: 30
     Dates: start: 20240808, end: 20240808
  4. PEMETREXED [Suspect]
     Active Substance: PEMETREXED
     Dosage: FORM OF ADMINISTRATION-POWDER FOR CONCENTRATE FOR SOLUTION FOR INFUSION

REACTIONS (3)
  - Bullous haemorrhagic dermatosis [Recovered/Resolved]
  - Tongue oedema [Recovered/Resolved]
  - Dysphagia [Recovered/Resolved]

NARRATIVE: CASE EVENT DATE: 20240808
